FAERS Safety Report 19484579 (Version 3)
Quarter: 2021Q3

REPORT INFORMATION
  Report Type: Spontaneous
  Country: US (occurrence: US)
  Receive Date: 20210702
  Receipt Date: 20210923
  Transmission Date: 20211014
  Serious: No
  Sender: FDA-Public Use
  Company Number: US-ORGANON-O2106USA002595

PATIENT
  Age: 35 Year
  Sex: Female
  Weight: 121.1 kg

DRUGS (1)
  1. NEXPLANON [Suspect]
     Active Substance: ETONOGESTREL
     Indication: CONTRACEPTION
     Dosage: 68 MG, RIGHT UPPER ARM
     Route: 059
     Dates: start: 20210602, end: 20210630

REACTIONS (3)
  - Device kink [Recovered/Resolved]
  - Device placement issue [Recovered/Resolved]
  - Implant site pain [Not Recovered/Not Resolved]

NARRATIVE: CASE EVENT DATE: 202106
